FAERS Safety Report 7994963-5 (Version None)
Quarter: 2011Q4

REPORT INFORMATION
  Report Type: 
  Country: None (occurrence: None)
  Receive Date: 20111220
  Receipt Date: 20111207
  Transmission Date: 20120403
  Serious: Yes (Other)
  Sender: FDA-Public Use
  Company Number: US-ROCHE-1021076

PATIENT

DRUGS (8)
  1. IFOSFAMIDE [Suspect]
     Indication: BURKITT'S LYMPHOMA
     Route: 065
  2. DOXORUBICIN HCL [Suspect]
     Indication: BURKITT'S LYMPHOMA
     Route: 065
  3. CYTARABINE [Suspect]
     Indication: BURKITT'S LYMPHOMA
     Route: 065
  4. VINCRISTINE [Suspect]
     Indication: BURKITT'S LYMPHOMA
     Route: 065
  5. METHOTREXATE [Suspect]
     Indication: BURKITT'S LYMPHOMA
     Dosage: 3 GRAM/M2
     Route: 042
  6. MABTHERA [Suspect]
     Indication: BURKITT'S LYMPHOMA
     Route: 042
  7. ETOPOSIDE [Suspect]
     Indication: BURKITT'S LYMPHOMA
     Route: 065
  8. CYCLOPHOSPHAMIDE [Suspect]
     Indication: BURKITT'S LYMPHOMA
     Route: 065

REACTIONS (9)
  - THROMBOCYTOPENIA [None]
  - TRANSAMINASES INCREASED [None]
  - CONVULSION [None]
  - BONE MARROW FAILURE [None]
  - MUCOSAL INFLAMMATION [None]
  - DIARRHOEA [None]
  - ANAEMIA [None]
  - BLOOD CREATININE INCREASED [None]
  - FEBRILE NEUTROPENIA [None]
